FAERS Safety Report 25070962 (Version 2)
Quarter: 2025Q4

REPORT INFORMATION
  Report Type: Report from Study
  Country: CA (occurrence: CA)
  Receive Date: 20250312
  Receipt Date: 20251222
  Transmission Date: 20260117
  Serious: Yes (Other)
  Sender: HLS THERAPEUTICS
  Company Number: CA-HLS-202500575

PATIENT
  Age: 61 Year
  Sex: Female
  Weight: 158 kg

DRUGS (1)
  1. CLOZARIL [Suspect]
     Active Substance: CLOZAPINE
     Indication: Product used for unknown indication
     Route: 048
     Dates: start: 20060426

REACTIONS (7)
  - Anxiety [Unknown]
  - Constipation [Unknown]
  - Follicular lymphoma [Unknown]
  - Sedation [Unknown]
  - Salivary hypersecretion [Unknown]
  - Insomnia [Unknown]
  - Urinary incontinence [Unknown]

NARRATIVE: CASE EVENT DATE: 20251208
